FAERS Safety Report 16171194 (Version 1)
Quarter: 2019Q2

REPORT INFORMATION
  Report Type: Spontaneous
  Country: IT (occurrence: IT)
  Receive Date: 20190408
  Receipt Date: 20190408
  Transmission Date: 20190711
  Serious: Yes (Hospitalization, Other)
  Sender: FDA-Public Use
  Company Number: IT-PFIZER INC-2019145837

PATIENT
  Age: 71 Year
  Sex: Male

DRUGS (4)
  1. DUOPLAVIN [Suspect]
     Active Substance: ASPIRIN\CLOPIDOGREL
     Indication: PLATELET AGGREGATION INHIBITION
     Dosage: 175 MG, 1X/DAY
     Route: 048
     Dates: start: 20170101, end: 20190314
  2. ORUDIS [Suspect]
     Active Substance: KETOPROFEN
     Indication: SCIATICA
     Dosage: 100 MG, 1X/DAY
     Route: 030
     Dates: start: 20190211, end: 20190314
  3. LYRICA [Suspect]
     Active Substance: PREGABALIN
     Indication: SCIATICA
     Dosage: 75 MG, 1X/DAY
     Route: 048
     Dates: start: 20190311, end: 20190314
  4. BENTELAN [Suspect]
     Active Substance: BETAMETHASONE SODIUM PHOSPHATE
     Indication: SCIATICA
     Dosage: 4 MG, 1X/DAY
     Route: 030
     Dates: start: 20190311, end: 20190314

REACTIONS (3)
  - Haematemesis [Unknown]
  - Product use issue [Unknown]
  - Rectal haemorrhage [Unknown]

NARRATIVE: CASE EVENT DATE: 20190311
